FAERS Safety Report 15752543 (Version 1)
Quarter: 2018Q4

REPORT INFORMATION
  Report Type: Report from Study
  Country: ES (occurrence: ES)
  Receive Date: 20181221
  Receipt Date: 20181221
  Transmission Date: 20190205
  Serious: Yes (Other)
  Sender: FDA-Public Use
  Company Number: ES-TEVA-2018-ES-989548

PATIENT
  Age: 90 Year
  Sex: Female

DRUGS (2)
  1. IMIPENEM (72A) [Suspect]
     Active Substance: IMIPENEM
     Indication: PNEUMONIA
     Dosage: UNKNOWN
     Dates: start: 20180702
  2. FLUCONAZOL (2432A) [Suspect]
     Active Substance: FLUCONAZOLE
     Indication: URINARY TRACT INFECTION
     Dosage: UNKNOWN
     Route: 065
     Dates: start: 2018

REACTIONS (1)
  - Epilepsy [Recovering/Resolving]

NARRATIVE: CASE EVENT DATE: 201807
